FAERS Safety Report 9329586 (Version 1)
Quarter: 2013Q2

REPORT INFORMATION
  Report Type: Spontaneous
  Country: US (occurrence: US)
  Receive Date: 20130604
  Receipt Date: 20130604
  Transmission Date: 20140414
  Serious: Yes (Other)
  Sender: FDA-Public Use
  Company Number: US-SANOFI-AVENTIS-2012SA088694

PATIENT
  Age: 27 Year
  Sex: Male
  Weight: 100 kg

DRUGS (3)
  1. LANTUS [Suspect]
     Indication: DIABETES MELLITUS
     Dosage: 35 TO 50 UNITS AT BEDTIME
     Route: 058
     Dates: start: 20030801
  2. HUMALOG [Suspect]
     Indication: DIABETES MELLITUS
     Dosage: SLIDING SCALE  1:4  1:10
     Route: 065
     Dates: start: 200308
  3. LISINOPRIL [Concomitant]
     Indication: RENAL DISORDER
     Dates: start: 200409

REACTIONS (6)
  - Hypoglycaemia [Recovered/Resolved]
  - Cold sweat [Recovered/Resolved]
  - Vision blurred [Recovered/Resolved]
  - Heart rate increased [Recovered/Resolved]
  - Blood glucose increased [Unknown]
  - Injection site pain [Not Recovered/Not Resolved]
